FAERS Safety Report 9217751 (Version 2)
Quarter: 2013Q2

REPORT INFORMATION
  Report Type: Spontaneous
  Country: PH (occurrence: PH)
  Receive Date: 20130408
  Receipt Date: 20130418
  Transmission Date: 20140414
  Serious: Yes (Death)
  Sender: FDA-Public Use
  Company Number: PH-ASTRAZENECA-2013SE21977

PATIENT
  Sex: Male

DRUGS (10)
  1. BRILINTA [Suspect]
     Indication: PERCUTANEOUS CORONARY INTERVENTION
     Dosage: LOADING DOSE OF 180 MG PRIOR TO ANGIOPLASTY
     Route: 048
  2. BRILINTA [Suspect]
     Indication: ELECTROCARDIOGRAM ST SEGMENT ELEVATION
     Dosage: LOADING DOSE OF 180 MG PRIOR TO ANGIOPLASTY
     Route: 048
  3. BRILINTA [Suspect]
     Indication: PERCUTANEOUS CORONARY INTERVENTION
     Route: 048
  4. BRILINTA [Suspect]
     Indication: ELECTROCARDIOGRAM ST SEGMENT ELEVATION
     Route: 048
  5. ASA [Concomitant]
  6. BETA BLOCKER [Concomitant]
  7. STATIN [Concomitant]
  8. PARACETAMOL [Concomitant]
  9. DIAZEPAM [Concomitant]
  10. AMIODARONE [Concomitant]

REACTIONS (1)
  - Thrombosis in device [Fatal]
